FAERS Safety Report 25671740 (Version 2)
Quarter: 2025Q3

REPORT INFORMATION
  Report Type: Spontaneous
  Country: EU (occurrence: EU)
  Receive Date: 20250812
  Receipt Date: 20250916
  Transmission Date: 20251021
  Serious: Yes (Hospitalization)
  Sender: MYLAN
  Company Number: EU-ROCHE-10000287824

PATIENT
  Age: 45 Year
  Sex: Female
  Weight: 59.3 kg

DRUGS (36)
  1. PREDNISONE [Suspect]
     Active Substance: PREDNISONE
     Indication: Richter^s syndrome
     Dates: start: 20250325, end: 20250329
  2. PREDNISONE [Suspect]
     Active Substance: PREDNISONE
     Dates: start: 20250415, end: 20250419
  3. PREDNISONE [Suspect]
     Active Substance: PREDNISONE
     Dates: start: 20250506, end: 20250510
  4. PREDNISONE [Suspect]
     Active Substance: PREDNISONE
     Dates: start: 20250528, end: 20250602
  5. PREDNISONE [Suspect]
     Active Substance: PREDNISONE
     Dates: start: 20250618, end: 20250618
  6. PREDNISONE [Suspect]
     Active Substance: PREDNISONE
     Dates: start: 20250716, end: 20250716
  7. VINCRISTINE [Suspect]
     Active Substance: VINCRISTINE
     Indication: Richter^s syndrome
     Dates: start: 20250325, end: 20250325
  8. VINCRISTINE [Suspect]
     Active Substance: VINCRISTINE
     Dates: start: 20250415, end: 20250415
  9. VINCRISTINE [Suspect]
     Active Substance: VINCRISTINE
     Dates: start: 20250506, end: 20250506
  10. VINCRISTINE [Suspect]
     Active Substance: VINCRISTINE
     Dates: start: 20250528, end: 20250528
  11. VINCRISTINE [Suspect]
     Active Substance: VINCRISTINE
     Dates: start: 20250618, end: 20250618
  12. VINCRISTINE [Suspect]
     Active Substance: VINCRISTINE
     Dates: start: 20250716, end: 20250716
  13. DOXORUBICIN [Suspect]
     Active Substance: DOXORUBICIN
     Indication: Richter^s syndrome
     Dates: start: 20250325, end: 20250325
  14. DOXORUBICIN [Suspect]
     Active Substance: DOXORUBICIN
     Dates: start: 20250415, end: 20250415
  15. DOXORUBICIN [Suspect]
     Active Substance: DOXORUBICIN
     Dates: start: 20250506, end: 20250506
  16. DOXORUBICIN [Suspect]
     Active Substance: DOXORUBICIN
     Dates: start: 20250528, end: 20250528
  17. DOXORUBICIN [Suspect]
     Active Substance: DOXORUBICIN
     Dates: start: 20250618, end: 20250618
  18. DOXORUBICIN [Suspect]
     Active Substance: DOXORUBICIN
     Dates: start: 20250716, end: 20250716
  19. CYCLOPHOSPHAMIDE [Suspect]
     Active Substance: CYCLOPHOSPHAMIDE
     Indication: Richter^s syndrome
     Dates: start: 20250325, end: 20250325
  20. CYCLOPHOSPHAMIDE [Suspect]
     Active Substance: CYCLOPHOSPHAMIDE
     Dates: start: 20250415, end: 20250415
  21. CYCLOPHOSPHAMIDE [Suspect]
     Active Substance: CYCLOPHOSPHAMIDE
     Dates: start: 20250506, end: 20250506
  22. CYCLOPHOSPHAMIDE [Suspect]
     Active Substance: CYCLOPHOSPHAMIDE
     Dates: start: 20250528, end: 20250528
  23. CYCLOPHOSPHAMIDE [Suspect]
     Active Substance: CYCLOPHOSPHAMIDE
     Dates: start: 20250618, end: 20250618
  24. CYCLOPHOSPHAMIDE [Suspect]
     Active Substance: CYCLOPHOSPHAMIDE
     Dates: start: 20250716, end: 20250716
  25. OBINUTUZUMAB [Suspect]
     Active Substance: OBINUTUZUMAB
     Indication: Richter^s syndrome
     Dosage: 1000 MILLIGRAM, QD (D1C2)
     Dates: start: 20250415, end: 20250415
  26. GLOFITAMAB [Suspect]
     Active Substance: GLOFITAMAB
     Indication: Richter^s syndrome
     Dosage: 2.5 MILLIGRAM, QD (C2D8)
     Dates: start: 20250424, end: 20250424
  27. GLOFITAMAB [Suspect]
     Active Substance: GLOFITAMAB
     Dosage: 2.5 MILLIGRAM, QD (C2D15)
     Dates: start: 20250430, end: 20250430
  28. GLOFITAMAB [Suspect]
     Active Substance: GLOFITAMAB
     Dosage: 2.5 MILLIGRAM, QD (C3D8)
     Dates: start: 20250513, end: 20250513
  29. GLOFITAMAB [Suspect]
     Active Substance: GLOFITAMAB
     Dosage: 30 MILLIGRAM, QD (C4D8)
     Dates: start: 20250603, end: 20250603
  30. GLOFITAMAB [Suspect]
     Active Substance: GLOFITAMAB
     Dosage: 30 MILLIGRAM, QD (C4D8)
     Dates: start: 20250625, end: 20250625
  31. GLOFITAMAB [Suspect]
     Active Substance: GLOFITAMAB
     Dosage: 30 MILLIGRAM, QD (C4D8)
     Dates: start: 20250723, end: 20250723
  32. RITUXIMAB [Suspect]
     Active Substance: RITUXIMAB
     Indication: Richter^s syndrome
     Dosage: 375 MILLIGRAM/SQ. METER, QD (D1C1)
     Dates: start: 20250325, end: 20250325
  33. RITUXIMAB [Suspect]
     Active Substance: RITUXIMAB
     Dosage: 375 MILLIGRAM/SQ. METER, QD (D1C3)
     Dates: start: 20250506, end: 20250506
  34. RITUXIMAB [Suspect]
     Active Substance: RITUXIMAB
     Dosage: 375 MILLIGRAM/SQ. METER, QD (D1C4)
     Dates: start: 20250528, end: 20250528
  35. RITUXIMAB [Suspect]
     Active Substance: RITUXIMAB
     Dosage: 375 MILLIGRAM/SQ. METER, QD (D1C4)
     Dates: start: 20250618, end: 20250618
  36. RITUXIMAB [Suspect]
     Active Substance: RITUXIMAB
     Dosage: 375 MILLIGRAM/SQ. METER, QD (D1C4)
     Dates: start: 20250716, end: 20250716

REACTIONS (3)
  - Cytokine release syndrome [Recovering/Resolving]
  - Febrile neutropenia [Recovered/Resolved]
  - Neutropenia [Not Recovered/Not Resolved]

NARRATIVE: CASE EVENT DATE: 20250424
